FAERS Safety Report 17423269 (Version 1)
Quarter: 2020Q1

REPORT INFORMATION
  Report Type: Spontaneous
  Country: US (occurrence: US)
  Receive Date: 20200131
  Receipt Date: 20200131
  Transmission Date: 20200409
  Serious: No
  Sender: FDA-Public Use
  Company Number: None

PATIENT
  Age: 59 Year
  Sex: Male

DRUGS (1)
  1. CHLORTHALIDONE 25MG [Suspect]
     Active Substance: CHLORTHALIDONE
     Dosage: ?          OTHER DOSE:8 TABS;?
     Route: 048
     Dates: start: 20200122, end: 20200128

REACTIONS (2)
  - Product dispensing error [None]
  - Wrong product administered [None]

NARRATIVE: CASE EVENT DATE: 20200122
